FAERS Safety Report 21454004 (Version 1)
Quarter: 2022Q4

REPORT INFORMATION
  Report Type: Spontaneous
  Country: US (occurrence: US)
  Receive Date: 20221013
  Receipt Date: 20221013
  Transmission Date: 20230113
  Serious: No
  Sender: FDA-Public Use
  Company Number: US-SANOFI-01313933

PATIENT
  Sex: Female

DRUGS (2)
  1. DUPIXENT [Suspect]
     Active Substance: DUPILUMAB
     Indication: Dermatitis atopic
     Dosage: FIRST DOSE
  2. DUPIXENT [Suspect]
     Active Substance: DUPILUMAB
     Dosage: SECOND DOSE

REACTIONS (4)
  - Skin fissures [Unknown]
  - Skin swelling [Unknown]
  - Injection site pruritus [Unknown]
  - Dermatitis atopic [Unknown]
